FAERS Safety Report 21616481 (Version 5)
Quarter: 2023Q4

REPORT INFORMATION
  Report Type: Report from Study
  Country: BR (occurrence: BR)
  Receive Date: 20221118
  Receipt Date: 20231229
  Transmission Date: 20240109
  Serious: Yes (Hospitalization, Other)
  Sender: FDA-Public Use
  Company Number: BR-BIOGEN-2022BI01169271

PATIENT
  Age: 43 Year
  Sex: Male
  Weight: 70 kg

DRUGS (4)
  1. TYSABRI [Suspect]
     Active Substance: NATALIZUMAB
     Indication: Multiple sclerosis
     Route: 050
     Dates: start: 20160901
  2. COVID-19 VACCINE NOS [Suspect]
     Active Substance: COVID-19 VACCINE NOS
     Indication: COVID-19 prophylaxis
     Route: 050
  3. BACLOFEN [Concomitant]
     Active Substance: BACLOFEN
     Indication: Pain in extremity
     Route: 050
  4. PRIMIDONE [Concomitant]
     Active Substance: PRIMIDONE
     Indication: Balance disorder
     Dosage: 1 AND 1/2 IN MORNING 1/4 AT NIGHT (75 MG)
     Route: 050

REACTIONS (12)
  - Balance disorder [Recovered/Resolved]
  - Nervousness [Recovered/Resolved]
  - Fall [Recovered/Resolved]
  - Multiple sclerosis [Recovered/Resolved]
  - Emotional distress [Recovered/Resolved]
  - Bacterial test positive [Not Recovered/Not Resolved]
  - COVID-19 [Recovered/Resolved]
  - Hemiparesis [Unknown]
  - Dizziness [Not Recovered/Not Resolved]
  - Immunisation reaction [Recovered/Resolved]
  - Treatment failure [Unknown]
  - Urinary tract infection [Not Recovered/Not Resolved]

NARRATIVE: CASE EVENT DATE: 20221107
